APPROVED DRUG PRODUCT: ASENAPINE MALEATE
Active Ingredient: ASENAPINE MALEATE
Strength: EQ 10MG BASE
Dosage Form/Route: TABLET;SUBLINGUAL
Application: A206098 | Product #002 | TE Code: AB
Applicant: ALEMBIC PHARMACEUTICALS LTD
Approved: Dec 10, 2020 | RLD: No | RS: No | Type: RX